FAERS Safety Report 11971583 (Version 1)
Quarter: 2016Q1

REPORT INFORMATION
  Report Type: Spontaneous
  Country: EG (occurrence: EG)
  Receive Date: 20160128
  Receipt Date: 20160128
  Transmission Date: 20160526
  Serious: Yes (Death, Hospitalization, Other)
  Sender: FDA-Public Use
  Company Number: EG-NOVOPROD-477920

PATIENT
  Age: 64 Year
  Sex: Male
  Weight: 50 kg

DRUGS (1)
  1. INSULATARD NPH HUMAN [Suspect]
     Active Substance: INSULIN HUMAN
     Indication: DIABETES MELLITUS
     Dosage: 45 IU, QD (30 IU PER MORNING AND 15 IU PER NIGHT)
     Route: 058
     Dates: start: 201502

REACTIONS (7)
  - Cerebrovascular accident [Not Recovered/Not Resolved]
  - Diabetic foot [Not Recovered/Not Resolved]
  - Gangrene [Fatal]
  - Decreased appetite [Unknown]
  - Weight decreased [Unknown]
  - Depression [Unknown]
  - Treatment noncompliance [Unknown]

NARRATIVE: CASE EVENT DATE: 201510
